FAERS Safety Report 9481586 (Version 1)
Quarter: 2013Q3

REPORT INFORMATION
  Report Type: Spontaneous
  Country: US (occurrence: US)
  Receive Date: 20130828
  Receipt Date: 20130828
  Transmission Date: 20140515
  Serious: Yes (Other)
  Sender: FDA-Public Use
  Company Number: US-AMGEN-KDL176977

PATIENT
  Age: 62 Year
  Sex: Female

DRUGS (2)
  1. ENBREL [Suspect]
     Indication: RHEUMATOID ARTHRITIS
     Dosage: 12.5 MG, 2 TIMES/WK
     Route: 058
     Dates: start: 20050126
  2. HYDROXYCHLOROQUINE SULFATE [Concomitant]
     Dosage: 200 MG, QD
     Dates: start: 1990

REACTIONS (1)
  - Hepatic enzyme increased [Unknown]
